FAERS Safety Report 7931499-1 (Version None)
Quarter: 2011Q4

REPORT INFORMATION
  Report Type: 
  Country: None (occurrence: None)
  Receive Date: 20111121
  Receipt Date: 20111121
  Transmission Date: 20120403
  Serious: Yes (Other)
  Sender: FDA-Public Use
  Company Number: None

PATIENT
  Age: 66 Year
  Sex: Female
  Weight: 64.863 kg

DRUGS (1)
  1. EVISTA [Suspect]
     Indication: OSTEOPOROSIS
     Dosage: 60MG
     Route: 048
     Dates: start: 20070101, end: 20110701

REACTIONS (10)
  - PIGMENTATION DISORDER [None]
  - FEELING HOT [None]
  - DRUG INEFFECTIVE [None]
  - BONE DENSITY DECREASED [None]
  - CONTUSION [None]
  - THROMBOSIS [None]
  - VARICOSE VEIN [None]
  - MUSCLE SPASMS [None]
  - JOINT SWELLING [None]
  - OEDEMA PERIPHERAL [None]
